FAERS Safety Report 5425983-2 (Version None)
Quarter: 2007Q3

REPORT INFORMATION
  Report Type: 
  Country: None (occurrence: None)
  Receive Date: 20070827
  Receipt Date: 20070824
  Transmission Date: 20080115
  Serious: Yes (Other)
  Sender: FDA-Public Use
  Company Number: GB-BRISTOL-MYERS SQUIBB COMPANY-13887997

PATIENT
  Age: 37 Year
  Sex: Female

DRUGS (4)
  1. ACETYLCYSTEINE [Suspect]
     Route: 042
  2. PARACETAMOL [Suspect]
  3. METHADONE HCL [Suspect]
  4. CARBAMAZEPINE [Concomitant]

REACTIONS (3)
  - ACUTE HEPATIC FAILURE [None]
  - DRUG INEFFECTIVE [None]
  - OVERDOSE [None]
